FAERS Safety Report 6417578-9 (Version None)
Quarter: 2009Q4

REPORT INFORMATION
  Report Type: 
  Country: None (occurrence: None)
  Receive Date: 20091023
  Receipt Date: 20091020
  Transmission Date: 20100525
  Serious: No
  Sender: FDA-Public Use
  Company Number: ADR46392009

PATIENT
  Age: 67 Year
  Sex: Male

DRUGS (3)
  1. ALENDRONIC ACID [Suspect]
     Indication: SPINAL FRACTURE
     Dates: start: 20000101
  2. IBANDRONIC ACID [Concomitant]
  3. ZOLEDRONATE ION [Concomitant]

REACTIONS (4)
  - FEMUR FRACTURE [None]
  - FRACTURE DELAYED UNION [None]
  - OSTEOSYNTHESIS [None]
  - PAIN [None]
